FAERS Safety Report 22216258 (Version 1)
Quarter: 2023Q2

REPORT INFORMATION
  Report Type: Report from Study
  Country: US (occurrence: US)
  Receive Date: 20230417
  Receipt Date: 20230417
  Transmission Date: 20230721
  Serious: No
  Sender: FDA-Public Use
  Company Number: US-002147023-NVSC2023US086338

PATIENT
  Sex: Female
  Weight: 56.7 kg

DRUGS (2)
  1. HALOBETASOL PROPIONATE [Suspect]
     Active Substance: HALOBETASOL PROPIONATE
     Indication: Psoriasis
     Dosage: UNK
     Route: 065
  2. HALOBETASOL PROPIONATE [Suspect]
     Active Substance: HALOBETASOL PROPIONATE
     Indication: Psoriatic arthropathy

REACTIONS (1)
  - Drug ineffective [Unknown]
